FAERS Safety Report 7830249-7 (Version None)
Quarter: 2011Q4

REPORT INFORMATION
  Report Type: 
  Country: None (occurrence: None)
  Receive Date: 20111021
  Receipt Date: 20111019
  Transmission Date: 20120403
  Serious: No
  Sender: FDA-Public Use
  Company Number: US-B.I. PHARMACEUTICALS,INC./RIDGEFIELD-2011-BP-22544BP

PATIENT
  Age: 81 Year
  Sex: Female
  Weight: 54.5 kg

DRUGS (7)
  1. SULFAZINE [Concomitant]
     Dosage: 1000 MG
  2. TOPROL-XL [Concomitant]
     Dosage: 25 MG
  3. FOLIC ACID [Concomitant]
     Dosage: 1 MG
  4. PREVACID [Concomitant]
     Dosage: 30 MG
  5. PRADAXA [Suspect]
     Indication: ATRIAL FIBRILLATION
     Dosage: 150 MG
     Route: 048
     Dates: start: 20110727, end: 20110728
  6. REMERON [Concomitant]
     Dosage: 15 MG
  7. SYNTHROID [Concomitant]
     Dosage: 100 MCG

REACTIONS (2)
  - DYSPHAGIA [None]
  - DYSPEPSIA [None]
